FAERS Safety Report 24467395 (Version 1)
Quarter: 2024Q4

REPORT INFORMATION
  Report Type: Spontaneous
  Country: US (occurrence: US)
  Receive Date: 20241018
  Receipt Date: 20241018
  Transmission Date: 20250115
  Serious: No
  Sender: ROCHE
  Company Number: US-ROCHE-3557758

PATIENT
  Sex: Female

DRUGS (2)
  1. XOLAIR [Suspect]
     Active Substance: OMALIZUMAB
     Indication: Urticaria
     Route: 065
     Dates: start: 20240429
  2. XOLAIR [Suspect]
     Active Substance: OMALIZUMAB
     Indication: Eczema

REACTIONS (5)
  - Dry skin [Unknown]
  - Pain [Unknown]
  - Pruritus [Unknown]
  - COVID-19 [Unknown]
  - Tonsillectomy [Unknown]
